FAERS Safety Report 5850246-0 (Version None)
Quarter: 2008Q3

REPORT INFORMATION
  Report Type: 
  Country: None (occurrence: None)
  Receive Date: 20080819
  Receipt Date: 20080812
  Transmission Date: 20090109
  Serious: Yes (Other)
  Sender: FDA-Public Use
  Company Number: PHBS2008GB04630

PATIENT
  Sex: Male

DRUGS (1)
  1. COMTESS [Suspect]
     Dosage: 1 DOSE PER DAY
     Route: 065

REACTIONS (1)
  - ANGINA PECTORIS [None]
